FAERS Safety Report 17051212 (Version 2)
Quarter: 2025Q3

REPORT INFORMATION
  Report Type: Spontaneous
  Country: EU (occurrence: EU)
  Receive Date: 20191120
  Receipt Date: 20250710
  Transmission Date: 20251021
  Serious: Yes (Other)
  Sender: AUROBINDO
  Company Number: EU-ARISTO PHARMA-OLAN201910221

PATIENT
  Age: 47 Year
  Sex: Female

DRUGS (1)
  1. OLANZAPINE [Suspect]
     Active Substance: OLANZAPINE
     Indication: Psychotic disorder
     Route: 065

REACTIONS (5)
  - Dyspnoea [Unknown]
  - Hallucination, visual [Unknown]
  - Speech disorder [Unknown]
  - Fatigue [Unknown]
  - Disturbance in attention [Unknown]
